FAERS Safety Report 4446312-7 (Version None)
Quarter: 2004Q3

REPORT INFORMATION
  Report Type: 
  Country: None (occurrence: None)
  Receive Date: 20040907
  Receipt Date: 20040827
  Transmission Date: 20050211
  Serious: Yes (Hospitalization)
  Sender: FDA-Public Use
  Company Number: 2004-03822

PATIENT
  Age: 74 Year
  Sex: Male

DRUGS (3)
  1. MIRTAZAPINE [Suspect]
     Indication: MAJOR DEPRESSION
     Dosage: 1 TABLET, DAILY, ORAL
     Route: 048
  2. MIRTAZAPINE [Suspect]
     Indication: MAJOR DEPRESSION
     Dosage: 1 TABLET , DAILY, ORAL
     Route: 048
  3. LISINOPRIL [Concomitant]

REACTIONS (1)
  - RHABDOMYOLYSIS [None]
